FAERS Safety Report 4610824-3 (Version None)
Quarter: 2005Q2

REPORT INFORMATION
  Report Type: 
  Country: None (occurrence: None)
  Receive Date: 20050225
  Receipt Date: 20040622
  Transmission Date: 20051028
  Serious: Yes (Hospitalization)
  Sender: FDA-Public Use
  Company Number: S04-USA-03706-01

PATIENT
  Age: 75 Year
  Sex: Female

DRUGS (4)
  1. MONUROL [Suspect]
     Indication: CYSTITIS
     Dosage: 3 MG ONCE PO
     Route: 048
     Dates: start: 20040616, end: 20040616
  2. ATENOLOL [Concomitant]
  3. HYDROCHLOROTHIAZIDE [Concomitant]
  4. ECOTRIN (ACETYLSALICYCLIC ACID) [Concomitant]

REACTIONS (2)
  - DIARRHOEA [None]
  - DIZZINESS [None]
